FAERS Safety Report 8495076-9 (Version None)
Quarter: 2012Q3

REPORT INFORMATION
  Report Type: 
  Country: None (occurrence: None)
  Receive Date: 20120709
  Receipt Date: 20120628
  Transmission Date: 20120928
  Serious: Yes (Other)
  Sender: FDA-Public Use
  Company Number: ES-ELI_LILLY_AND_COMPANY-ES201206009317

PATIENT
  Sex: Male
  Weight: 71 kg

DRUGS (9)
  1. NECITUMUMAB (11F8) (LY3012211) [Suspect]
     Indication: NON-SMALL CELL LUNG CANCER
     Dosage: 800 MG, OTHER
     Route: 042
     Dates: start: 20120201, end: 20120606
  2. ALPRAZOLAM [Concomitant]
     Dosage: 0.5 MG, BID
  3. FORTECORTIN                        /00016011/ [Concomitant]
     Dosage: 1 MG, QD
  4. GEMCITABINE HYDROCHLORIDE [Suspect]
     Indication: NON-SMALL CELL LUNG CANCER
     Dosage: 2275 MG, OTHER
     Route: 042
     Dates: start: 20120201
  5. CISPLATIN [Suspect]
     Indication: NON-SMALL CELL LUNG CANCER
     Dosage: 136 MG, OTHER
     Route: 042
     Dates: start: 20120201
  6. MIRTAZAPINE [Concomitant]
     Dosage: 30 MG, QD
  7. PANTOPRAZOLE [Concomitant]
     Dosage: 1 DF, QD
  8. ESCITALOPRAM [Concomitant]
     Dosage: 15 MG, QD
  9. FLUTICASONE PROPIONATE/SALMETEROL [Concomitant]
     Dosage: 1 DF, QD, 50/250

REACTIONS (1)
  - VENOUS THROMBOSIS LIMB [None]
